FAERS Safety Report 9754045 (Version 1)
Quarter: 2013Q4

REPORT INFORMATION
  Report Type: Spontaneous
  Country: US (occurrence: US)
  Receive Date: 20131213
  Receipt Date: 20131213
  Transmission Date: 20140711
  Serious: No
  Sender: FDA-Public Use
  Company Number: US-GLAXOSMITHKLINE-A1012325A

PATIENT
  Age: 58 Year
  Sex: Female

DRUGS (1)
  1. NICORETTE FRESHMINT 4MG [Suspect]
     Indication: SMOKING CESSATION THERAPY
     Dates: start: 20130210, end: 20130214

REACTIONS (1)
  - Nausea [Recovered/Resolved]
